FAERS Safety Report 18755732 (Version 1)
Quarter: 2021Q1

REPORT INFORMATION
  Report Type: Spontaneous
  Country: US (occurrence: US)
  Receive Date: 20210115
  Receipt Date: 20210115
  Transmission Date: 20210419
  Serious: Yes (Disabling)
  Sender: FDA-Public Use
  Company Number: None

PATIENT
  Age: 41 Year
  Sex: Male
  Weight: 94.5 kg

DRUGS (7)
  1. ROSUVASTATIN. [Concomitant]
     Active Substance: ROSUVASTATIN
  2. TRIBULUS TERRESTIS [Concomitant]
  3. FINASTERIDE. [Suspect]
     Active Substance: FINASTERIDE
     Indication: ANDROGENETIC ALOPECIA
     Dosage: ?          QUANTITY:1 TABLET(S);?
     Route: 048
  4. WELLBUTRIN [Concomitant]
     Active Substance: BUPROPION HYDROCHLORIDE
  5. ABILIFY [Concomitant]
     Active Substance: ARIPIPRAZOLE
  6. ATIVAN [Concomitant]
     Active Substance: LORAZEPAM
  7. FENOFIBRIC ACID. [Concomitant]
     Active Substance: FENOFIBRIC ACID

REACTIONS (6)
  - Sexual dysfunction [None]
  - Suicidal ideation [None]
  - Penis disorder [None]
  - Loss of libido [None]
  - Erectile dysfunction [None]
  - Major depression [None]

NARRATIVE: CASE EVENT DATE: 20160401
